FAERS Safety Report 11146889 (Version 3)
Quarter: 2015Q3

REPORT INFORMATION
  Report Type: Spontaneous
  Country: DE (occurrence: DE)
  Receive Date: 20150528
  Receipt Date: 20150916
  Transmission Date: 20151125
  Serious: Yes (Death)
  Sender: FDA-Public Use
  Company Number: DE-TEVA-564717GER

PATIENT
  Age: 39 Year
  Sex: Female
  Weight: 92 kg

DRUGS (5)
  1. TRISENOX [Suspect]
     Active Substance: ARSENIC TRIOXIDE
     Indication: ACUTE MYELOID LEUKAEMIA
     Dosage: 14 MILLIGRAM DAILY;
     Route: 042
     Dates: start: 20150409, end: 20150411
  2. VOMEX A [Concomitant]
     Active Substance: DIMENHYDRINATE
     Dates: start: 20150409, end: 20150411
  3. VESANOID [Concomitant]
     Active Substance: TRETINOIN
     Indication: ACUTE MYELOID LEUKAEMIA
     Dosage: 90 MILLIGRAM DAILY;
     Route: 048
     Dates: start: 20150409, end: 20150411
  4. PREDNISOLON [Concomitant]
     Active Substance: PREDNISOLONE
     Dates: start: 20150409, end: 20150411
  5. MCP [Concomitant]
     Active Substance: METOCLOPRAMIDE HYDROCHLORIDE
     Dates: start: 20150409, end: 20150411

REACTIONS (8)
  - Vomiting [Fatal]
  - Asthenia [Fatal]
  - Circulatory collapse [Fatal]
  - Circulatory collapse [Fatal]
  - Shock [Fatal]
  - Acute hepatic failure [Fatal]
  - Asthenia [Fatal]
  - Hypotension [Fatal]

NARRATIVE: CASE EVENT DATE: 20150409
